FAERS Safety Report 4461278-1 (Version None)
Quarter: 2004Q3

REPORT INFORMATION
  Report Type: 
  Country: None (occurrence: None)
  Receive Date: 20040928
  Receipt Date: 20030422
  Transmission Date: 20050211
  Serious: Yes (Other)
  Sender: FDA-Public Use
  Company Number: US-GLAXOSMITHKLINE-A0406391A

PATIENT
  Sex: Male

DRUGS (5)
  1. WELLBUTRIN [Suspect]
     Indication: SMOKING CESSATION THERAPY
     Route: 048
     Dates: start: 20010725, end: 20010904
  2. TRANQUILIZER [Suspect]
  3. DEPAKOTE [Suspect]
     Indication: BIPOLAR DISORDER
     Dates: start: 20010907
  4. ZYPREXA [Suspect]
     Indication: PSYCHOTIC DISORDER
     Dates: start: 20010916
  5. ALCOHOL [Concomitant]

REACTIONS (52)
  - ACQUIRED PORPHYRIA [None]
  - AGGRESSION [None]
  - AGITATION [None]
  - AKATHISIA [None]
  - ALLERGY TO CHEMICALS [None]
  - AMNESIA [None]
  - ARTHRALGIA [None]
  - ASTHENIA [None]
  - BIPOLAR DISORDER [None]
  - CONTRAST MEDIA REACTION [None]
  - CONVULSION [None]
  - COORDINATION ABNORMAL [None]
  - CRYING [None]
  - DEPRESSION [None]
  - DEPRESSION SUICIDAL [None]
  - DISABILITY [None]
  - DIZZINESS [None]
  - DYSARTHRIA [None]
  - DYSPHEMIA [None]
  - DYSPNOEA [None]
  - ELECTRIC SHOCK [None]
  - ENCEPHALOPATHY [None]
  - FACIAL PALSY [None]
  - FATIGUE [None]
  - FEELING ABNORMAL [None]
  - HEAD BANGING [None]
  - HEADACHE [None]
  - HYPERAESTHESIA [None]
  - HYPERSENSITIVITY [None]
  - HYPOXIA [None]
  - IMMUNE SYSTEM DISORDER [None]
  - INJURY [None]
  - INSOMNIA [None]
  - INTENTIONAL SELF-INJURY [None]
  - MANIA [None]
  - MASTOCYTOSIS [None]
  - METABOLIC ENCEPHALOPATHY [None]
  - MUSCLE SPASMS [None]
  - MYALGIA [None]
  - MYOCLONUS [None]
  - NERVOUS SYSTEM DISORDER [None]
  - NIGHTMARE [None]
  - OVERDOSE [None]
  - PAIN OF SKIN [None]
  - PETIT MAL EPILEPSY [None]
  - SUICIDAL IDEATION [None]
  - SUICIDE ATTEMPT [None]
  - TEMPERATURE REGULATION DISORDER [None]
  - THROAT TIGHTNESS [None]
  - TREMOR [None]
  - VESTIBULAR DISORDER [None]
  - VOMITING [None]
